FAERS Safety Report 5192211-5 (Version None)
Quarter: 2006Q4

REPORT INFORMATION
  Report Type: 
  Country: None (occurrence: None)
  Receive Date: 20061220
  Receipt Date: 20061207
  Transmission Date: 20070319
  Serious: Yes (Life-Threatening, Hospitalization)
  Sender: FDA-Public Use
  Company Number: 2004217510BE

PATIENT
  Age: 70 Year
  Sex: Female

DRUGS (6)
  1. SUTENT [Suspect]
     Indication: GASTROINTESTINAL STROMAL TUMOUR
     Dosage: 50 MG (1 IN 1 D), ORAL
     Route: 048
     Dates: start: 20040504, end: 20040601
  2. RABEPRAZOLE SODIUM [Concomitant]
  3. ACETAMINOPHEN [Concomitant]
  4. BUPRENORPHINE HCL [Concomitant]
  5. LACTULOSE [Concomitant]
  6. KALIUM (POTASSIUM CHLORIDE) [Concomitant]

REACTIONS (4)
  - AMMONIA INCREASED [None]
  - DEPRESSED LEVEL OF CONSCIOUSNESS [None]
  - SOMNOLENCE [None]
  - THROMBOCYTOPENIA [None]
